FAERS Safety Report 6532057-6 (Version None)
Quarter: 2010Q1

REPORT INFORMATION
  Report Type: 
  Country: None (occurrence: None)
  Receive Date: 20100107
  Receipt Date: 20100107
  Transmission Date: 20100710
  Serious: Yes (Hospitalization)
  Sender: FDA-Public Use
  Company Number: None

PATIENT
  Sex: Female
  Weight: 65 kg

DRUGS (6)
  1. DEXAMETHASONE [Suspect]
     Dosage: 224 MG
  2. DOXORUBICIN HCL [Suspect]
     Dosage: 126 MG
  3. DOXORUBICIN HCL [Suspect]
  4. DOXORUBICIN HCL [Suspect]
  5. VINCRISTINE SULFATE [Suspect]
     Dosage: 6 MG
  6. VINCRISTINE SULFATE [Suspect]

REACTIONS (9)
  - BLOOD CULTURE POSITIVE [None]
  - CARDIAC ARREST [None]
  - GENERAL PHYSICAL HEALTH DETERIORATION [None]
  - HYPOXIA [None]
  - INFLUENZA SEROLOGY POSITIVE [None]
  - PANCYTOPENIA [None]
  - PNEUMONIA STREPTOCOCCAL [None]
  - PNEUMOTHORAX [None]
  - SEPTIC SHOCK [None]
